FAERS Safety Report 9766204 (Version 1)
Quarter: 2013Q4

REPORT INFORMATION
  Report Type: Spontaneous
  Country: US (occurrence: US)
  Receive Date: 20131217
  Receipt Date: 20131217
  Transmission Date: 20140711
  Serious: No
  Sender: FDA-Public Use
  Company Number: US-PFIZER INC-2013355903

PATIENT
  Age: 38 Year
  Sex: Male

DRUGS (1)
  1. INLYTA [Suspect]
     Indication: RENAL CELL CARCINOMA
     Dosage: 5 MG, 2X/DAY
     Dates: start: 20131204

REACTIONS (4)
  - Blood calcium increased [Unknown]
  - Myalgia [Unknown]
  - Fatigue [Unknown]
  - Dehydration [Unknown]
